FAERS Safety Report 7553947-1 (Version None)
Quarter: 2011Q2

REPORT INFORMATION
  Report Type: 
  Country: None (occurrence: None)
  Receive Date: 20110614
  Receipt Date: 20110614
  Transmission Date: 20111010
  Serious: Yes (Hospitalization)
  Sender: FDA-Public Use
  Company Number: None

PATIENT
  Age: 71 Year
  Sex: Male
  Weight: 86.3 kg

DRUGS (2)
  1. RANOLAZINE [Suspect]
     Indication: ANGINA PECTORIS
     Dosage: 1000 MG BID PO
     Route: 048
     Dates: start: 20110427, end: 20110603
  2. SIMVASTATIN [Suspect]
     Indication: HYPERLIPIDAEMIA
     Dosage: 80 MG EVERY DAY PO
     Route: 048
     Dates: end: 20110603

REACTIONS (6)
  - ASTHENIA [None]
  - RENAL FAILURE ACUTE [None]
  - FEELING ABNORMAL [None]
  - ARTHRALGIA [None]
  - CHROMATURIA [None]
  - RHABDOMYOLYSIS [None]
